FAERS Safety Report 7681256-9 (Version None)
Quarter: 2011Q3

REPORT INFORMATION
  Report Type: 
  Country: None (occurrence: None)
  Receive Date: 20110812
  Receipt Date: 20110629
  Transmission Date: 20111222
  Serious: Yes (Other)
  Sender: FDA-Public Use
  Company Number: PHHY2011JP51677

PATIENT
  Age: 75 Year
  Sex: Male

DRUGS (12)
  1. RASILEZ [Suspect]
     Indication: HYPERTENSION
     Dosage: UNK
     Route: 048
     Dates: start: 20110328, end: 20110509
  2. CONIEL [Concomitant]
     Dosage: UNK MG, UNK
     Route: 048
     Dates: start: 20110112
  3. ATELEC [Concomitant]
     Dosage: UNK
     Route: 048
  4. MICARDIS [Concomitant]
     Dosage: UNK
     Route: 048
     Dates: start: 20110112
  5. SPIRONOLACTONE [Concomitant]
     Dosage: UNK , UNK
     Route: 048
  6. ALLOPURINOL [Concomitant]
     Dosage: UNK , UNK
     Route: 048
  7. ASPIRIN [Concomitant]
     Route: 048
  8. WARFARIN SODIUM [Concomitant]
     Route: 048
  9. INTENURSE [Concomitant]
     Route: 062
  10. LANIRAPID [Concomitant]
     Dosage: UNK
     Route: 048
  11. LANSOPRAZOLE [Concomitant]
     Dosage: UNK
     Route: 048
  12. LASIX [Concomitant]
     Dosage: UNK MG, UNK
     Route: 048
     Dates: start: 20110112

REACTIONS (5)
  - HYPERKALAEMIA [None]
  - BLOOD URIC ACID INCREASED [None]
  - BLOOD PRESSURE DIASTOLIC DECREASED [None]
  - BLOOD CREATININE INCREASED [None]
  - BLOOD UREA INCREASED [None]
